FAERS Safety Report 18148476 (Version 2)
Quarter: 2020Q3

REPORT INFORMATION
  Report Type: Spontaneous
  Country: PL (occurrence: PL)
  Receive Date: 20200814
  Receipt Date: 20200817
  Transmission Date: 20201103
  Serious: Yes (Other)
  Sender: FDA-Public Use
  Company Number: PL-IPSEN BIOPHARMACEUTICALS, INC.-2020-14305

PATIENT
  Sex: Female

DRUGS (5)
  1. SOMATULINE AUTOGEL [Suspect]
     Active Substance: LANREOTIDE ACETATE
     Indication: PRODUCT USED FOR UNKNOWN INDICATION
     Dosage: UNK
     Route: 065
  2. HYDROCORTISONE. [Concomitant]
     Active Substance: HYDROCORTISONE
     Indication: PRODUCT USED FOR UNKNOWN INDICATION
     Route: 065
  3. SANDOSTATIN LAR DEPOT [Suspect]
     Active Substance: OCTREOTIDE ACETATE
     Dosage: 40 MG, QMO
     Route: 065
     Dates: start: 2015
  4. SANDOSTATIN LAR DEPOT [Suspect]
     Active Substance: OCTREOTIDE ACETATE
     Indication: ACROMEGALY
     Dosage: 30 MG
     Route: 065
     Dates: start: 2005
  5. DOSTINEX [Concomitant]
     Active Substance: CABERGOLINE
     Indication: PRODUCT USED FOR UNKNOWN INDICATION
     Route: 065

REACTIONS (36)
  - Emphysema [Unknown]
  - Intervertebral disc disorder [Unknown]
  - Hyperparathyroidism primary [Unknown]
  - Hypogonadism [Unknown]
  - Blood growth hormone increased [Unknown]
  - Haematochezia [Unknown]
  - Dyslipidaemia [Unknown]
  - Spinal osteoarthritis [Unknown]
  - Osteoarthritis [Unknown]
  - Blood gonadotrophin decreased [Unknown]
  - Osteoporosis [Unknown]
  - Drug ineffective [Unknown]
  - Blood prolactin increased [Unknown]
  - Chronic gastritis [Unknown]
  - Blood parathyroid hormone increased [Unknown]
  - Urinary tract infection [Unknown]
  - Secondary hypogonadism [Unknown]
  - Blood thyroid stimulating hormone decreased [Unknown]
  - Pancreatic neuroendocrine tumour [Unknown]
  - Secondary hypothyroidism [Unknown]
  - Mitral valve incompetence [Unknown]
  - Cholelithiasis [Unknown]
  - Goitre [Unknown]
  - Parathyroid tumour benign [Unknown]
  - Multiple endocrine neoplasia Type 1 [Unknown]
  - Type 2 diabetes mellitus [Unknown]
  - Vitamin D deficiency [Unknown]
  - Hypopituitarism [Unknown]
  - Haemorrhoids [Unknown]
  - Hypercalcaemia [Unknown]
  - Insulin-like growth factor increased [Unknown]
  - Aortic valve incompetence [Unknown]
  - Overweight [Unknown]
  - Secondary adrenocortical insufficiency [Unknown]
  - Hypercholesterolaemia [Unknown]
  - Diverticulum intestinal [Unknown]

NARRATIVE: CASE EVENT DATE: 2016
